FAERS Safety Report 4345289-2 (Version None)
Quarter: 2004Q2

REPORT INFORMATION
  Report Type: 
  Country: None (occurrence: None)
  Receive Date: 20040420
  Receipt Date: 20040408
  Transmission Date: 20050107
  Serious: Yes (Other)
  Sender: FDA-Public Use
  Company Number: A03200400758

PATIENT
  Age: 58 Year
  Sex: Male
  Weight: 73.4827 kg

DRUGS (6)
  1. ELOXATIN [Suspect]
     Indication: COLON CANCER STAGE IV
     Dosage: 130 MG Q2W - INTRAVENOUS NOS
     Route: 042
     Dates: start: 20040223, end: 20040223
  2. ELOXATIN [Suspect]
     Indication: METASTASES TO LIVER
     Dosage: 130 MG Q2W - INTRAVENOUS NOS
     Route: 042
     Dates: start: 20040223, end: 20040223
  3. FLUOROURACIL [Concomitant]
  4. LEUCOVORIN CALCIUM [Concomitant]
  5. CALCIUM GLUCONATE [Concomitant]
  6. MAGNESIUM [Concomitant]

REACTIONS (4)
  - CONFUSIONAL STATE [None]
  - HALLUCINATION [None]
  - MENTAL STATUS CHANGES [None]
  - PERSONALITY DISORDER [None]
